FAERS Safety Report 5728287-3 (Version None)
Quarter: 2008Q2

REPORT INFORMATION
  Report Type: 
  Country: None (occurrence: None)
  Receive Date: 20080430
  Receipt Date: 20080127
  Transmission Date: 20081010
  Serious: No
  Sender: FDA-Public Use
  Company Number: 2008PV034046

PATIENT
  Age: 74 Year
  Sex: Female
  Weight: 69.8539 kg

DRUGS (11)
  1. SYMLIN [Suspect]
     Indication: TYPE 2 DIABETES MELLITUS
     Dosage: 120 MCG;TID;SC ; 60 MCG;TID;SC
     Route: 058
     Dates: start: 20060101
  2. SYMLIN [Suspect]
     Indication: TYPE 2 DIABETES MELLITUS
     Dosage: 120 MCG;TID;SC ; 60 MCG;TID;SC
     Route: 058
     Dates: start: 20060101
  3. LASIX [Suspect]
     Dosage: 40 MG;QD ; 20 MG;QD
     Dates: start: 20071201, end: 20071201
  4. LASIX [Suspect]
     Dosage: 40 MG;QD ; 20 MG;QD
     Dates: start: 20071201
  5. LANTUS [Concomitant]
  6. HUMALOG [Concomitant]
  7. NORVASC [Concomitant]
  8. PLAVIX [Concomitant]
  9. ASPIRIN [Concomitant]
  10. PRAVASTATIN [Concomitant]
  11. METOPROLOL TARTRATE [Concomitant]

REACTIONS (5)
  - BLOOD GLUCOSE DECREASED [None]
  - BLOOD GLUCOSE INCREASED [None]
  - BLOOD UREA INCREASED [None]
  - MUSCLE SPASMS [None]
  - VISION BLURRED [None]
